FAERS Safety Report 10449381 (Version 2)
Quarter: 2014Q3

REPORT INFORMATION
  Report Type: Report from Study
  Country: DE (occurrence: DE)
  Receive Date: 20140912
  Receipt Date: 20140915
  Transmission Date: 20150326
  Serious: Yes (Death)
  Sender: FDA-Public Use
  Company Number: PHHY2014DE117127

PATIENT
  Sex: Female
  Weight: 70 kg

DRUGS (2)
  1. EXEMESTANE. [Concomitant]
     Active Substance: EXEMESTANE
     Indication: BREAST CANCER METASTATIC
     Dosage: 25 MG, QD
     Route: 048
     Dates: start: 20140807, end: 20140908
  2. AFINITOR [Suspect]
     Active Substance: EVEROLIMUS
     Indication: BREAST CANCER METASTATIC
     Dosage: 5 MG, QD
     Route: 048
     Dates: start: 20140807, end: 20140908

REACTIONS (10)
  - Bradycardia [Fatal]
  - Aspartate aminotransferase increased [Fatal]
  - Blood bilirubin increased [Fatal]
  - Alanine aminotransferase increased [Fatal]
  - Lipase increased [Fatal]
  - General physical health deterioration [Fatal]
  - Blood lactate dehydrogenase increased [Fatal]
  - Blood creatine phosphokinase increased [Fatal]
  - C-reactive protein increased [Fatal]
  - Convulsion [Fatal]

NARRATIVE: CASE EVENT DATE: 20140909
